FAERS Safety Report 7510493-9 (Version None)
Quarter: 2011Q2

REPORT INFORMATION
  Report Type: 
  Country: None (occurrence: None)
  Receive Date: 20110529
  Receipt Date: 20110525
  Transmission Date: 20111010
  Serious: Yes (Hospitalization)
  Sender: FDA-Public Use
  Company Number: FR-BRISTOL-MYERS SQUIBB COMPANY-15740277

PATIENT
  Age: 55 Year
  Sex: Male

DRUGS (3)
  1. CETUXIMAB [Suspect]
     Indication: HEAD AND NECK CANCER
     Dosage: 16DEC09-16DEC09,FOLLOWING INTIAL DOSE-27JAN10;250MG/M2/WEEK
     Route: 042
     Dates: start: 20091216, end: 20100127
  2. CARBOPLATIN [Suspect]
     Indication: HEAD AND NECK CANCER
     Dosage: ON THE FIRST 4 DAYS OF THE 21 DAY CYCLE,MOST RECENT DOSE ON 14JAN2010
     Route: 042
     Dates: start: 20091221, end: 20100114
  3. FLUOROURACIL [Suspect]
     Indication: HEAD AND NECK CANCER
     Dosage: ON THE FIRST 4 DAYS OF THE 21 DAY CYCLE,MOST RECENT DOSE ON 14JAN2010
     Route: 042
     Dates: start: 20091221, end: 20100114

REACTIONS (2)
  - MUCOSAL INFLAMMATION [None]
  - DERMATITIS [None]
